FAERS Safety Report 7975349-6 (Version None)
Quarter: 2011Q4

REPORT INFORMATION
  Report Type: 
  Country: None (occurrence: None)
  Receive Date: 20111213
  Receipt Date: 20110926
  Transmission Date: 20120403
  Serious: Yes (Other)
  Sender: FDA-Public Use
  Company Number: US-AMGEN-USASP2011049809

PATIENT
  Sex: Female

DRUGS (3)
  1. TREXALL [Concomitant]
     Dosage: 4 MG, QWK
     Dates: start: 20010101
  2. ENBREL [Suspect]
     Indication: RHEUMATOID ARTHRITIS
     Dosage: 25 MG, 2 TIMES/WK
     Dates: start: 20010101
  3. PLAQUENIL [Concomitant]
     Dosage: 1 MG, BID

REACTIONS (2)
  - BLOOD PRESSURE INCREASED [None]
  - CELLULITIS [None]
